FAERS Safety Report 18975136 (Version 1)
Quarter: 2021Q1

REPORT INFORMATION
  Report Type: Spontaneous
  Country: US (occurrence: US)
  Receive Date: 20210306
  Receipt Date: 20210306
  Transmission Date: 20210420
  Serious: No
  Sender: FDA-Public Use
  Company Number: US-JNJFOC-20210234706

PATIENT
  Sex: Female

DRUGS (1)
  1. WOMENS ROGAINE [Suspect]
     Active Substance: MINOXIDIL
     Indication: ALOPECIA
     Dosage: DOSE: AS DIRECTED?FREQUENCY: ONCE IN MORNING (EVERYDAY OR SOMETIMES EVERY OTHER DAY)
     Route: 061
     Dates: start: 20200921

REACTIONS (1)
  - Inappropriate schedule of product administration [Unknown]
